FAERS Safety Report 5872061-4 (Version None)
Quarter: 2008Q3

REPORT INFORMATION
  Report Type: 
  Country: None (occurrence: None)
  Receive Date: 20080905
  Receipt Date: 20080902
  Transmission Date: 20090109
  Serious: Yes (Hospitalization, Other)
  Sender: FDA-Public Use
  Company Number: US-RANBAXY-2008US-17613

PATIENT

DRUGS (7)
  1. ISOPTIN SR [Suspect]
     Indication: DRUG USE FOR UNKNOWN INDICATION
     Dosage: 120 MG, BID
     Dates: start: 20070101, end: 20080607
  2. WARFARIN SODIUM [Suspect]
     Indication: ATRIAL FIBRILLATION
     Dosage: 5MG
     Route: 048
     Dates: start: 20080303, end: 20080326
  3. EXEMESTANE [Concomitant]
     Indication: DRUG USE FOR UNKNOWN INDICATION
     Dosage: UNK
     Dates: start: 20080331
  4. PAMIDRONATE DISODIUM [Concomitant]
     Indication: DRUG USE FOR UNKNOWN INDICATION
     Dosage: UNK
     Dates: start: 20080331
  5. PAMIDRONATE DISODIUM [Concomitant]
     Dosage: UNK
     Dates: start: 20080414
  6. SIMVASTATIN [Concomitant]
     Indication: DRUG USE FOR UNKNOWN INDICATION
     Dosage: UNK
     Dates: start: 20060101
  7. APIXABAN [Suspect]
     Indication: ATRIAL FIBRILLATION
     Dosage: UNK
     Route: 048
     Dates: start: 20080303, end: 20080326

REACTIONS (5)
  - CHEST PAIN [None]
  - DYSPNOEA [None]
  - HYPONATRAEMIA [None]
  - SINUS BRADYCARDIA [None]
  - SYNCOPE [None]
